FAERS Safety Report 7567956-X (Version None)
Quarter: 2011Q2

REPORT INFORMATION
  Report Type: 
  Country: None (occurrence: None)
  Receive Date: 20110616
  Receipt Date: 20110531
  Transmission Date: 20111010
  Serious: Yes (Hospitalization)
  Sender: FDA-Public Use
  Company Number: FK201101134

PATIENT
  Age: 17 Year
  Sex: Female

DRUGS (4)
  1. MITOGUAZONE (MITOGUAZONE) (MITOGUAZONE) [Suspect]
     Indication: HODGKIN'S DISEASE
  2. NAVELBINE [Suspect]
     Indication: HODGKIN'S DISEASE
  3. ETOPOSIDE [Suspect]
     Indication: HODGKIN'S DISEASE
  4. IFOSFAMIDE [Suspect]
     Indication: HODGKIN'S DISEASE

REACTIONS (14)
  - PARAESTHESIA [None]
  - HYPOALBUMINAEMIA [None]
  - SKIN DISORDER [None]
  - PROTEINURIA [None]
  - ASTHENIA [None]
  - C-REACTIVE PROTEIN INCREASED [None]
  - OEDEMA [None]
  - HYPONATRAEMIA [None]
  - MYALGIA [None]
  - MUCOSAL INFLAMMATION [None]
  - HYPOTHERMIA [None]
  - RASH ERYTHEMATOUS [None]
  - HYPERAESTHESIA [None]
  - SKIN NECROSIS [None]
